FAERS Safety Report 11420531 (Version 1)
Quarter: 2015Q3

REPORT INFORMATION
  Report Type: Spontaneous
  Country: CA (occurrence: CA)
  Receive Date: 20150826
  Receipt Date: 20150826
  Transmission Date: 20151125
  Serious: Yes (Hospitalization, Other)
  Sender: FDA-Public Use
  Company Number: CA-GILEAD-2015-0168734

PATIENT
  Age: 48 Year
  Sex: Male
  Weight: 105 kg

DRUGS (7)
  1. PEGASYS [Suspect]
     Active Substance: PEGINTERFERON ALFA-2A
     Indication: HEPATITIS C VIRUS TEST POSITIVE
     Dosage: 600 MG, QD
     Route: 048
  2. RIBAVIRIN. [Suspect]
     Active Substance: RIBAVIRIN
     Indication: HEPATITIS C VIRUS TEST POSITIVE
     Dosage: 600 MG, QD
     Route: 048
  3. ATROVENT [Concomitant]
     Active Substance: IPRATROPIUM BROMIDE
  4. QUETIAPINE [Concomitant]
     Active Substance: QUETIAPINE
  5. SOVALDI [Suspect]
     Active Substance: SOFOSBUVIR
     Indication: HEPATITIS C VIRUS TEST POSITIVE
     Dosage: 400 MG, QD
     Route: 048
  6. DOCUSATE CALCIUM. [Concomitant]
     Active Substance: DOCUSATE CALCIUM
  7. CLOZAPINE. [Concomitant]
     Active Substance: CLOZAPINE

REACTIONS (2)
  - Confusional state [Recovering/Resolving]
  - Psychotic disorder [Recovering/Resolving]
